FAERS Safety Report 5064130-6 (Version None)
Quarter: 2006Q3

REPORT INFORMATION
  Report Type: 
  Country: None (occurrence: None)
  Receive Date: 20060728
  Receipt Date: 20060314
  Transmission Date: 20061208
  Serious: No
  Sender: FDA-Public Use
  Company Number: 18177

PATIENT
  Age: 78 Year
  Sex: Female
  Weight: 54.5 kg

DRUGS (2)
  1. ZANTAC [Suspect]
     Indication: DRUG USE FOR UNKNOWN INDICATION
     Route: 042
     Dates: start: 20060314, end: 20060314
  2. NO CONCURRENT MEDICATION [Concomitant]

REACTIONS (4)
  - INFUSION SITE IRRITATION [None]
  - INFUSION SITE PRURITUS [None]
  - PHARMACEUTICAL PRODUCT COMPLAINT [None]
  - PRURITUS [None]
